FAERS Safety Report 13264752 (Version 1)
Quarter: 2017Q1

REPORT INFORMATION
  Report Type: Spontaneous
  Country: US (occurrence: US)
  Receive Date: 20170223
  Receipt Date: 20170223
  Transmission Date: 20170428
  Serious: Yes (Other)
  Sender: FDA-Public Use
  Company Number: US-HQ SPECIALTY-US-2017INT000044

PATIENT

DRUGS (1)
  1. TAXOL [Suspect]
     Active Substance: PACLITAXEL
     Indication: SQUAMOUS CELL CARCINOMA OF HEAD AND NECK
     Dosage: UNK
     Dates: start: 201608, end: 201701

REACTIONS (1)
  - Malignant neoplasm progression [Unknown]
